FAERS Safety Report 5137916-7 (Version None)
Quarter: 2006Q4

REPORT INFORMATION
  Report Type: 
  Country: None (occurrence: None)
  Receive Date: 20061030
  Receipt Date: 20060210
  Transmission Date: 20070319
  Serious: No
  Sender: FDA-Public Use
  Company Number: US-GLAXOSMITHKLINE-A0593273A

PATIENT
  Age: 47 Year
  Sex: Female

DRUGS (4)
  1. ADVAIR HFA [Suspect]
     Indication: DRUG USE FOR UNKNOWN INDICATION
     Route: 055
     Dates: start: 20040101, end: 20060206
  2. ZITHROMAX [Concomitant]
  3. DOXYCYCLINE [Concomitant]
  4. TUSSIONEX [Concomitant]

REACTIONS (1)
  - BREAST PAIN [None]
